FAERS Safety Report 12337248 (Version 2)
Quarter: 2016Q2

REPORT INFORMATION
  Report Type: Report from Study
  Country: CA (occurrence: CA)
  Receive Date: 20160505
  Receipt Date: 20160520
  Transmission Date: 20160815
  Serious: Yes (Other)
  Sender: FDA-Public Use
  Company Number: PHHY2016CA047441

PATIENT
  Age: 57 Year
  Sex: Female

DRUGS (2)
  1. SANDOSTATIN [Suspect]
     Active Substance: OCTREOTIDE ACETATE
     Indication: CARCINOID TUMOUR
     Dosage: UNK UNK, TID
     Route: 058
     Dates: start: 200902, end: 20160104
  2. SANDOSTATIN LAR DEPOT [Suspect]
     Active Substance: OCTREOTIDE ACETATE
     Indication: CARCINOID TUMOUR
     Dosage: 30 MG, EVERY 4 WEEKS
     Route: 030

REACTIONS (14)
  - Malaise [Unknown]
  - Device difficult to use [Unknown]
  - Injection site pain [Recovered/Resolved]
  - Body temperature decreased [Unknown]
  - Malignant neoplasm progression [Unknown]
  - Stress [Unknown]
  - Influenza [Unknown]
  - Anxiety [Unknown]
  - Diarrhoea [Not Recovered/Not Resolved]
  - Diarrhoea [Recovered/Resolved]
  - Drug ineffective [Unknown]
  - Abdominal discomfort [Unknown]
  - Emotional disorder [Unknown]
  - Drug administration error [Unknown]

NARRATIVE: CASE EVENT DATE: 201510
